FAERS Safety Report 17390626 (Version 1)
Quarter: 2020Q1

REPORT INFORMATION
  Report Type: Spontaneous
  Country: US (occurrence: US)
  Receive Date: 20200207
  Receipt Date: 20200207
  Transmission Date: 20200409
  Serious: No
  Sender: FDA-Public Use
  Company Number: US-PRAGMA PHARMACEUTICALS, LLC-2019PRG00248

PATIENT
  Sex: Female

DRUGS (2)
  1. XELJANZ XR [Concomitant]
     Active Substance: TOFACITINIB CITRATE
     Dosage: 11 MG, 1X/DAY
     Route: 048
     Dates: start: 20190920
  2. KEFLEX [Suspect]
     Active Substance: CEPHALEXIN
     Indication: CYSTITIS ESCHERICHIA
     Dosage: UNK

REACTIONS (5)
  - Fatigue [Recovered/Resolved]
  - Back pain [Unknown]
  - Feeling abnormal [Recovered/Resolved]
  - Drug hypersensitivity [Recovered/Resolved]
  - Vertigo [Recovered/Resolved]
